FAERS Safety Report 9262573 (Version 1)
Quarter: 2013Q2

REPORT INFORMATION
  Report Type: Spontaneous
  Country: US (occurrence: US)
  Receive Date: 20130430
  Receipt Date: 20130430
  Transmission Date: 20140414
  Serious: Yes (Hospitalization, Other)
  Sender: FDA-Public Use
  Company Number: US-BAYER-2013-052071

PATIENT
  Age: 39 Year
  Sex: Female
  Weight: 74.83 kg

DRUGS (16)
  1. YAZ [Suspect]
     Indication: DYSMENORRHOEA
  2. YASMIN [Suspect]
  3. ZOFRAN [Concomitant]
     Indication: NAUSEA
  4. CHLOR-TRIMETON [Concomitant]
  5. CLARITIN [Concomitant]
     Indication: SINUSITIS
  6. AFRIN SPRAY [Concomitant]
     Indication: SINUSITIS
     Dosage: 0.05 %, UNK
     Route: 045
  7. SEPTRA DS [Concomitant]
     Indication: SINUSITIS
     Dosage: 800/160 MG
  8. PSEUDOEPHEDRINE [Concomitant]
     Indication: SINUSITIS
     Dosage: 30 MG, UNK
     Route: 048
  9. PSEUDOEPHEDRINE [Concomitant]
     Indication: NASAL CONGESTION
  10. IBUPROFEN [Concomitant]
     Dosage: 800 MG, UNK
     Route: 048
  11. TOPIRAMATE [Concomitant]
     Dosage: 25 MG, UNK
     Route: 048
  12. RIZATRIPTAN BENZOATE [Concomitant]
     Dosage: 10 MG, UNK
     Route: 048
  13. FLUTICASONE PROPIONATE [Concomitant]
     Dosage: 0.05 %, UNK
     Route: 045
  14. ESOMEPRAZOLE [Concomitant]
     Dosage: 40 MG, UNK
     Route: 048
  15. LOPERAMIDE [Concomitant]
     Dosage: 2 MG, UNK
     Route: 048
  16. METHOCARBAMOL [Concomitant]
     Dosage: 500 MG, UNK
     Route: 048

REACTIONS (3)
  - Pulmonary embolism [None]
  - Deep vein thrombosis [None]
  - Deep vein thrombosis [None]
